FAERS Safety Report 5290609-8 (Version None)
Quarter: 2007Q2

REPORT INFORMATION
  Report Type: 
  Country: None (occurrence: None)
  Receive Date: 20070405
  Receipt Date: 20070405
  Transmission Date: 20071010
  Serious: Yes (Hospitalization)
  Sender: FDA-Public Use
  Company Number: None

PATIENT
  Sex: Male
  Weight: 70.5 kg

DRUGS (12)
  1. MYCOPHENOLATE MOFETIL [Suspect]
     Indication: IMMUNOSUPPRESSANT DRUG THERAPY
     Dosage: 1 GRAM PO 2X/DAY
     Dates: start: 20060509, end: 20060813
  2. MYCOPHENOLATE MOFETIL [Suspect]
     Indication: TRANSPLANT
     Dosage: 1 GRAM PO 2X/DAY
     Dates: start: 20060509, end: 20060813
  3. GANCICLOVIR [Suspect]
     Indication: ANTIVIRAL PROPHYLAXIS
     Dosage: 450 MG IV DAILY (M-F)
     Route: 042
     Dates: start: 20060509, end: 20060813
  4. PREDNISONE TAB [Concomitant]
  5. TACROLIMUS [Concomitant]
  6. HUMALOG [Concomitant]
  7. METOPROLOL SUCCINATE [Concomitant]
  8. AMLODIPINE [Concomitant]
  9. ESOMEPRAZOLE MAGNESIUM [Concomitant]
  10. MULTI-VITAMIN [Concomitant]
  11. CALCIUM + VIT D [Concomitant]
  12. MAGNESIUM [Concomitant]

REACTIONS (1)
  - PANCYTOPENIA [None]
